FAERS Safety Report 12725579 (Version 1)
Quarter: 2016Q3

REPORT INFORMATION
  Report Type: Spontaneous
  Country: AR (occurrence: AR)
  Receive Date: 20160908
  Receipt Date: 20160908
  Transmission Date: 20161109
  Serious: Yes (Other)
  Sender: FDA-Public Use
  Company Number: AR-KADMON PHARMACEUTICALS, LLC-KAD201609-003301

PATIENT
  Sex: Female

DRUGS (4)
  1. RIBAVIRIN. [Suspect]
     Active Substance: RIBAVIRIN
     Indication: HEPATITIS C
     Route: 048
     Dates: start: 20160824
  2. LOSARTAN. [Concomitant]
     Active Substance: LOSARTAN
  3. T4 [Concomitant]
     Active Substance: LEVOTHYROXINE
  4. VIEKIRA PAK [Suspect]
     Active Substance: DASABUVIR\OMBITASVIR\PARITAPREVIR\RITONAVIR
     Indication: HEPATITIS C
     Dosage: TABLET
     Route: 048
     Dates: start: 20160824

REACTIONS (2)
  - Asthenia [Unknown]
  - Jaundice [Unknown]

NARRATIVE: CASE EVENT DATE: 201608
